FAERS Safety Report 8439447-5 (Version None)
Quarter: 2012Q2

REPORT INFORMATION
  Report Type: 
  Country: None (occurrence: None)
  Receive Date: 20120615
  Receipt Date: 20120606
  Transmission Date: 20120825
  Serious: Yes (Other)
  Sender: FDA-Public Use
  Company Number: IE-JNJFOC-20120410021

PATIENT
  Sex: Female
  Weight: 19 kg

DRUGS (2)
  1. VERMOX [Suspect]
     Route: 048
     Dates: start: 20120419, end: 20120419
  2. VERMOX [Suspect]
     Indication: ENTEROBIASIS
     Route: 048
     Dates: start: 20120501

REACTIONS (2)
  - ERYTHEMA INFECTIOSUM [None]
  - RASH GENERALISED [None]
